FAERS Safety Report 5959978-7 (Version None)
Quarter: 2008Q4

REPORT INFORMATION
  Report Type: 
  Country: None (occurrence: None)
  Receive Date: 20081120
  Receipt Date: 20081114
  Transmission Date: 20090506
  Serious: Yes (Death, Life-Threatening, Other)
  Sender: FDA-Public Use
  Company Number: US-MERCK-0811USA02276

PATIENT
  Age: 79 Year
  Sex: Male

DRUGS (11)
  1. PRIMAXIN [Suspect]
     Indication: PNEUMONIA
     Route: 042
     Dates: start: 20080328
  2. VANCOMYCIN [Concomitant]
     Route: 065
  3. CALCIUM GLUCONATE [Concomitant]
     Route: 065
  4. SODIUM BICARBONATE [Concomitant]
     Route: 065
  5. CANCIDAS [Concomitant]
     Route: 065
  6. METRONIDAZOLE [Concomitant]
     Route: 065
  7. PROPOFOL [Concomitant]
     Route: 065
  8. AMIODARONE [Concomitant]
     Route: 065
  9. DOPAMINE HYDROCHLORIDE [Concomitant]
     Route: 065
  10. LEVOPHED [Concomitant]
     Route: 065
  11. PANTOPRAZOLE [Concomitant]
     Route: 065

REACTIONS (2)
  - CONVULSION [None]
  - RESPIRATORY FAILURE [None]
